FAERS Safety Report 17780195 (Version 1)
Quarter: 2020Q2

REPORT INFORMATION
  Report Type: Report from Study
  Country: ES (occurrence: ES)
  Receive Date: 20200514
  Receipt Date: 20200514
  Transmission Date: 20200714
  Serious: Yes (Hospitalization)
  Sender: FDA-Public Use
  Company Number: ES-TEVA-2020-ES-1233664

PATIENT
  Age: 60 Year
  Sex: Male

DRUGS (2)
  1. ENALAPRIL MALEATO (2142MA) [Suspect]
     Active Substance: ENALAPRIL MALEATE
     Dosage: 10 MG
     Route: 048
     Dates: start: 20170505, end: 20170705
  2. ALPROSTADIL (33A) [Concomitant]
     Dosage: 40 MG
     Route: 042
     Dates: start: 20170321, end: 20170705

REACTIONS (1)
  - Acute kidney injury [Recovered/Resolved]

NARRATIVE: CASE EVENT DATE: 20170705
